FAERS Safety Report 5106675-6 (Version None)
Quarter: 2006Q3

REPORT INFORMATION
  Report Type: 
  Country: None (occurrence: None)
  Receive Date: 20060731
  Receipt Date: 20051115
  Transmission Date: 20061208
  Serious: Yes (Hospitalization)
  Sender: FDA-Public Use
  Company Number: US-JNJFOC-20050801201

PATIENT
  Age: 34 Year
  Sex: Male
  Weight: 185.9748 kg

DRUGS (2)
  1. RISPERDAL [Suspect]
     Indication: SCHIZOPHRENIA, PARANOID TYPE
     Dosage: 4 MG, 2 IN 1 DAY, ORAL
     Route: 048
     Dates: start: 20020101, end: 20050101
  2. TOPOMAX (UNSPECIFIED) TOPIRAMATE [Concomitant]

REACTIONS (4)
  - ANORGASMIA [None]
  - EJACULATION DISORDER [None]
  - LIBIDO DECREASED [None]
  - SCHIZOAFFECTIVE DISORDER [None]
